FAERS Safety Report 6306679-1 (Version None)
Quarter: 2009Q3

REPORT INFORMATION
  Report Type: 
  Country: None (occurrence: None)
  Receive Date: 20090811
  Receipt Date: 20090811
  Transmission Date: 20100115
  Serious: Yes (Hospitalization)
  Sender: FDA-Public Use
  Company Number: None

PATIENT
  Sex: Male
  Weight: 96.9 kg

DRUGS (10)
  1. PEG-L-ASPARAGINE (K-H) [Suspect]
     Dosage: 5325 IU
  2. METHYLPREDNISOLONE [Suspect]
     Dosage: 3640 MG
  3. VINCRISTINE SULFATE [Suspect]
     Dosage: 8 MG
  4. ALLOPURINOL [Suspect]
     Dosage: 9000 MG
  5. CYTARABINE [Suspect]
     Dosage: 70 MG
  6. DAUNORUBICIN [Suspect]
     Dosage: 212 MG
  7. METHOTREXATE [Suspect]
     Dosage: 15MG
  8. FLORINEX [Concomitant]
  9. LEVAQUIN [Concomitant]
  10. PREDNISONE TAB [Concomitant]

REACTIONS (4)
  - COLONIC POLYP [None]
  - HAEMOGLOBIN DECREASED [None]
  - PLATELET COUNT DECREASED [None]
  - RECTAL HAEMORRHAGE [None]
